FAERS Safety Report 23789572 (Version 1)
Quarter: 2024Q2

REPORT INFORMATION
  Report Type: Spontaneous
  Country: US (occurrence: US)
  Receive Date: 20240426
  Receipt Date: 20240426
  Transmission Date: 20240715
  Serious: No
  Sender: FDA-Public Use
  Company Number: US-INSUD PHARMA-2404US03254

PATIENT

DRUGS (2)
  1. RAMELTEON [Suspect]
     Active Substance: RAMELTEON
     Indication: Sleep disorder
     Dosage: TOOK A HALF OF ONE
     Route: 048
     Dates: start: 202403
  2. RAMELTEON [Suspect]
     Active Substance: RAMELTEON
     Dosage: TOOK A WHOLE ONE BEFORE BED
     Route: 048
     Dates: start: 202403

REACTIONS (2)
  - Drug ineffective [Unknown]
  - Intentional underdose [Unknown]

NARRATIVE: CASE EVENT DATE: 20240301
